FAERS Safety Report 9282234 (Version 1)
Quarter: 2013Q2

REPORT INFORMATION
  Report Type: Spontaneous
  Country: US (occurrence: US)
  Receive Date: 20130510
  Receipt Date: 20130510
  Transmission Date: 20140414
  Serious: No
  Sender: FDA-Public Use
  Company Number: US-PFIZER INC-2013141856

PATIENT
  Age: 44 Year
  Sex: Female

DRUGS (3)
  1. ENBREL [Suspect]
     Indication: RHEUMATOID ARTHRITIS
     Dosage: 50 MG, QWK
     Dates: start: 2009
  2. METHOTREXATE SODIUM [Suspect]
     Dosage: UNK
     Dates: end: 201304
  3. HUMIRA [Suspect]
     Dosage: UNK

REACTIONS (5)
  - Rheumatoid nodule [Recovering/Resolving]
  - Joint swelling [Recovered/Resolved]
  - Arthralgia [Recovered/Resolved]
  - Alopecia [Recovering/Resolving]
  - Injection site pain [Not Recovered/Not Resolved]
